FAERS Safety Report 8935554 (Version 1)
Quarter: 2012Q4

REPORT INFORMATION
  Report Type: 
  Country: DE (occurrence: DE)
  Receive Date: 20121130
  Receipt Date: 20121130
  Transmission Date: 20130627
  Serious: Yes (Hospitalization)
  Sender: FDA-Public Use
  Company Number: GXKR2012DE003630

PATIENT
  Age: 21 Year
  Sex: Female

DRUGS (13)
  1. TRIMIPRAMINE [Suspect]
     Dosage: 25 mg, QD
     Route: 048
     Dates: start: 20110928, end: 20111013
  2. TRIMIPRAMINE [Suspect]
     Dosage: 50 mg, QD
     Route: 048
     Dates: start: 20111014, end: 20111108
  3. TRIMIPRAMINE [Suspect]
     Dosage: 100 mg, QD
     Route: 048
     Dates: start: 20111109, end: 20111128
  4. TRIMIPRAMINE [Suspect]
     Dosage: 50 mg, QD
     Route: 048
     Dates: start: 20111129, end: 20111204
  5. TRIMIPRAMINE [Suspect]
     Dosage: 25 mg, QD
     Route: 048
     Dates: start: 20111205, end: 20111206
  6. SERTRALINE [Suspect]
     Dates: start: 20111117, end: 20111129
  7. EUTHYROX [Concomitant]
     Dosage: 87.5 ug, QD
     Route: 048
     Dates: start: 20110909, end: 20110916
  8. EUTHYROX [Concomitant]
     Dosage: 75 ug, QD
     Route: 048
     Dates: start: 20110923, end: 20111118
  9. EUTHYROX [Concomitant]
     Dosage: 50 ug, QD
     Route: 048
     Dates: start: 20111119
  10. QUETIAPINE [Concomitant]
     Dosage: 100 mg/day
  11. CLOMIPRAMIN [Concomitant]
     Dosage: 25 mg/day
     Dates: start: 20111130, end: 20111205
  12. CLOMIPRAMIN [Concomitant]
     Dosage: 50 mg/day
     Dates: start: 20111206, end: 20111207
  13. CLOMIPRAMIN [Concomitant]
     Dosage: 100 mg/day
     Dates: start: 20111208

REACTIONS (1)
  - Obsessive-compulsive disorder [Recovered/Resolved]
